FAERS Safety Report 14295144 (Version 3)
Quarter: 2017Q4

REPORT INFORMATION
  Report Type: Report from Study
  Country: AU (occurrence: AU)
  Receive Date: 20171218
  Receipt Date: 20171226
  Transmission Date: 20180321
  Serious: Yes (Death, Other)
  Sender: FDA-Public Use
  Company Number: AU-GILEAD-2017-0310384

PATIENT
  Age: 36 Year
  Sex: Female
  Weight: 77 kg

DRUGS (1)
  1. SOFOSBUVIR W/VELPATASVIR [Suspect]
     Active Substance: SOFOSBUVIR\VELPATASVIR
     Indication: CHRONIC HEPATITIS C
     Dosage: UNK
     Route: 065
     Dates: end: 20161214

REACTIONS (1)
  - Death [Fatal]

NARRATIVE: CASE EVENT DATE: 20171123
